FAERS Safety Report 11077211 (Version 1)
Quarter: 2015Q2

REPORT INFORMATION
  Report Type: Spontaneous
  Country: GB (occurrence: GB)
  Receive Date: 20150429
  Receipt Date: 20150429
  Transmission Date: 20150821
  Serious: Yes (Other)
  Sender: FDA-Public Use
  Company Number: ALCN2015GB002555

PATIENT
  Age: 47 Year
  Sex: Female
  Weight: 67 kg

DRUGS (7)
  1. FEXOFENADINE [Concomitant]
     Active Substance: FEXOFENADINE\FEXOFENADINE HYDROCHLORIDE
     Dosage: UNK
  2. OPATANOL [Suspect]
     Active Substance: OLOPATADINE
     Indication: BLEPHARITIS ALLERGIC
     Dosage: 1 DF, BID
     Route: 047
     Dates: start: 20140910, end: 20150402
  3. FISH OIL CONCENTRATE [Concomitant]
     Dosage: UNK
     Route: 048
  4. STARFLOWER OIL [Concomitant]
     Dosage: UNK
  5. HYLO-FORTE [Concomitant]
     Dosage: UNK
  6. PREDNISOLONE. [Concomitant]
     Active Substance: PREDNISOLONE
     Dosage: UNK
  7. SERETIDE [Concomitant]
     Active Substance: FLUTICASONE FUROATE\SALMETEROL XINAFOATE
     Dosage: UNK

REACTIONS (10)
  - Drug hypersensitivity [Unknown]
  - Swelling face [Recovered/Resolved with Sequelae]
  - Headache [Not Recovered/Not Resolved]
  - Pain of skin [Recovering/Resolving]
  - Ocular hyperaemia [Recovering/Resolving]
  - Feeling abnormal [Recovering/Resolving]
  - Nasal dryness [Recovering/Resolving]
  - Skin disorder [Recovering/Resolving]
  - Eye swelling [Unknown]
  - Rash [Recovered/Resolved with Sequelae]

NARRATIVE: CASE EVENT DATE: 20140910
